FAERS Safety Report 18328944 (Version 4)
Quarter: 2022Q1

REPORT INFORMATION
  Report Type: Spontaneous
  Country: IT (occurrence: IT)
  Receive Date: 20200930
  Receipt Date: 20220325
  Transmission Date: 20220424
  Serious: Yes (Death, Other)
  Sender: FDA-Public Use
  Company Number: IT-CELLTRION INC.-2020IT027844

PATIENT

DRUGS (9)
  1. TRASTUZUMAB [Suspect]
     Active Substance: TRASTUZUMAB
     Indication: Salivary gland cancer
     Dosage: 4 MG/KG (FOURTH-LINE CT, LOADING DOSE), 1 EVERY WEEK  LOADING DOSE
     Route: 065
  2. TRASTUZUMAB [Suspect]
     Active Substance: TRASTUZUMAB
     Indication: Salivary gland cancer
     Dosage: 2 MG/KG (FOURTH-LINE CT), 1 EVERY WEEK MAINTENANCE DOSE
     Route: 065
  3. TRASTUZUMAB [Suspect]
     Active Substance: TRASTUZUMAB
     Indication: Salivary gland cancer
     Dosage: 6 MG/KG (3-WEEKLY)
     Route: 065
  4. VINORELBINE [Suspect]
     Active Substance: VINORELBINE TARTRATE
     Indication: Salivary gland cancer
     Dosage: 25 MG/M2 ON DAYS 1 AND 8 OF 21-DAY CYLCE
     Route: 065
  5. VINORELBINE [Suspect]
     Active Substance: VINORELBINE TARTRATE
     Indication: Salivary gland cancer
  6. CARBOPLATIN [Suspect]
     Active Substance: CARBOPLATIN
     Indication: Salivary gland cancer
     Dosage: AUC2, WEEKLY (FOURTH-LINE CT)
     Route: 065
  7. CARBOPLATIN [Suspect]
     Active Substance: CARBOPLATIN
     Indication: Salivary gland cancer
  8. PACLITAXEL [Suspect]
     Active Substance: PACLITAXEL
     Indication: Salivary gland cancer
     Dosage: 80 MG/M2 (FOURTH-LINE CT), 1 EVERY WEEK
     Route: 065
  9. PACLITAXEL [Suspect]
     Active Substance: PACLITAXEL
     Indication: Salivary gland cancer

REACTIONS (9)
  - Death [Fatal]
  - General physical health deterioration [Fatal]
  - Pneumonia [Fatal]
  - Febrile neutropenia [Fatal]
  - Ejection fraction decreased [Unknown]
  - Streptococcal endocarditis [Unknown]
  - Product use in unapproved indication [Fatal]
  - Intentional product use issue [Unknown]
  - Off label use [Unknown]

NARRATIVE: CASE EVENT DATE: 20200201
